FAERS Safety Report 17329992 (Version 3)
Quarter: 2020Q1

REPORT INFORMATION
  Report Type: Spontaneous
  Country: CO (occurrence: CO)
  Receive Date: 20200127
  Receipt Date: 20200306
  Transmission Date: 20200409
  Serious: Yes (Hospitalization)
  Sender: FDA-Public Use
  Company Number: CO-BIOMARINAP-CO-2020-128150

PATIENT
  Age: 6 Year
  Sex: Female

DRUGS (2)
  1. BRINEURA [Suspect]
     Active Substance: CERLIPONASE ALFA
     Indication: NEURONAL CEROID LIPOFUSCINOSIS
     Dosage: 300 MILLIGRAM, QOW
     Route: 020
     Dates: start: 20171207
  2. PROPOFOL. [Concomitant]
     Active Substance: PROPOFOL
     Indication: PRODUCT USED FOR UNKNOWN INDICATION

REACTIONS (3)
  - Irritability [Recovered/Resolved]
  - Catheter site fibrosis [Recovered/Resolved]
  - Pain [Recovered/Resolved]

NARRATIVE: CASE EVENT DATE: 20200123
